FAERS Safety Report 11078346 (Version 1)
Quarter: 2015Q2

REPORT INFORMATION
  Report Type: Spontaneous
  Country: US (occurrence: None)
  Receive Date: 20150429
  Receipt Date: 20150429
  Transmission Date: 20150821
  Serious: Yes (Hospitalization)
  Sender: FDA-Public Use
  Company Number: None

PATIENT
  Age: 67 Year
  Sex: Male
  Weight: 105 kg

DRUGS (2)
  1. RITUXIMAB [Suspect]
     Active Substance: RITUXIMAB
     Dates: end: 20150415
  2. BENDAMUSTINE HYDROCHLORIDE [Suspect]
     Active Substance: BENDAMUSTINE HYDROCHLORIDE
     Dates: end: 20150416

REACTIONS (7)
  - Pyrexia [None]
  - Staphylococcus test positive [None]
  - Nausea [None]
  - Vomiting [None]
  - Asthenia [None]
  - Device related infection [None]
  - Decreased appetite [None]

NARRATIVE: CASE EVENT DATE: 20150425
